FAERS Safety Report 12609331 (Version 2)
Quarter: 2016Q3

REPORT INFORMATION
  Report Type: Spontaneous
  Country: JP (occurrence: JP)
  Receive Date: 20160801
  Receipt Date: 20160910
  Transmission Date: 20161109
  Serious: Yes (Death, Other)
  Sender: FDA-Public Use
  Company Number: JP-AMGEN-JPNSP2016098658

PATIENT
  Age: 73 Year
  Sex: Male

DRUGS (10)
  1. UFT [Concomitant]
     Active Substance: TEGAFUR\URACIL
     Dosage: 100 MG, 3 TIMES/WK
     Route: 048
  2. GRANISETRON HYDROCHLORIDE. [Concomitant]
     Active Substance: GRANISETRON HYDROCHLORIDE
     Dosage: 3 MG, Q4WK
     Route: 065
  3. OXALIPLATIN. [Concomitant]
     Active Substance: OXALIPLATIN
     Dosage: 65 MG/M2, Q4WK
     Route: 041
  4. APREPITANT. [Concomitant]
     Active Substance: APREPITANT
     Dosage: UNK
     Route: 048
  5. DEXAMETHASONE. [Concomitant]
     Active Substance: DEXAMETHASONE
     Dosage: 8 MG, Q4WK
     Route: 065
  6. EPOETIN ALFA [Suspect]
     Active Substance: ERYTHROPOIETIN
     Indication: PRODUCT USED FOR UNKNOWN INDICATION
     Dosage: UNK
     Route: 042
  7. 5-FU [Concomitant]
     Active Substance: FLUOROURACIL
     Dosage: 2400 MG/M2, Q4WK
     Route: 041
  8. BEVACIZUMAB RECOMBINANT [Concomitant]
     Active Substance: BEVACIZUMAB
     Dosage: 3.5 MG/KG, Q4WK
     Route: 041
  9. LEVOFOLINATE CALCIUM [Concomitant]
     Active Substance: LEVOLEUCOVORIN CALCIUM
     Dosage: 140 MG/M2, Q4WK
     Route: 041
  10. NESP [Suspect]
     Active Substance: DARBEPOETIN ALFA
     Indication: PRODUCT USED FOR UNKNOWN INDICATION
     Dosage: UNK
     Route: 042

REACTIONS (4)
  - Malaise [Unknown]
  - Thrombocytopenia [Unknown]
  - Vomiting [Unknown]
  - Acute myocardial infarction [Fatal]
